FAERS Safety Report 4979986-2 (Version None)
Quarter: 2006Q2

REPORT INFORMATION
  Report Type: 
  Country: None (occurrence: None)
  Receive Date: 20060421
  Receipt Date: 20051026
  Transmission Date: 20061013
  Serious: Yes (Hospitalization, Disabling, Other)
  Sender: FDA-Public Use
  Company Number: US-MERCK-0510USA09465

PATIENT
  Age: 53 Year
  Sex: Male
  Weight: 105 kg

DRUGS (3)
  1. VIOXX [Suspect]
     Indication: ARTHRITIS
     Route: 048
     Dates: start: 19991001, end: 20040901
  2. VIOXX [Suspect]
     Route: 048
     Dates: start: 19991001, end: 20040901
  3. VIOXX [Suspect]
     Route: 048
     Dates: start: 19991001, end: 20040901

REACTIONS (19)
  - ANGINA PECTORIS [None]
  - ANXIETY [None]
  - ARTERIAL STENOSIS [None]
  - ARTERIOSCLEROSIS [None]
  - BUNDLE BRANCH BLOCK LEFT [None]
  - CARDIAC VALVE DISEASE [None]
  - CEREBROVASCULAR ACCIDENT [None]
  - COGNITIVE DISORDER [None]
  - CORONARY ARTERY DISEASE [None]
  - DIABETES MELLITUS [None]
  - DYSPNOEA [None]
  - HYPERLIPIDAEMIA [None]
  - HYPERTENSION [None]
  - LACUNAR INFARCTION [None]
  - OVERDOSE [None]
  - RETINAL VEIN OCCLUSION [None]
  - SLEEP APNOEA SYNDROME [None]
  - SLEEP DISORDER [None]
  - VISION BLURRED [None]
